FAERS Safety Report 22604078 (Version 1)
Quarter: 2023Q2

REPORT INFORMATION
  Report Type: Report from Study
  Country: RU (occurrence: RU)
  Receive Date: 20230615
  Receipt Date: 20230615
  Transmission Date: 20230722
  Serious: Yes (Death, Hospitalization, Other)
  Sender: FDA-Public Use
  Company Number: RU-002147023-NVSC2023RU012016

PATIENT
  Age: 49 Year
  Sex: Female
  Weight: 83 kg

DRUGS (5)
  1. KISQALI FEMARA CO-PACK [Suspect]
     Active Substance: LETROZOLE\RIBOCICLIB
     Indication: Breast cancer metastatic
     Dosage: 600 MG
     Route: 048
     Dates: start: 20220310
  2. KISQALI FEMARA CO-PACK [Suspect]
     Active Substance: LETROZOLE\RIBOCICLIB
     Dosage: 600 MG, QD
     Route: 048
     Dates: start: 20220930
  3. KISQALI FEMARA CO-PACK [Suspect]
     Active Substance: LETROZOLE\RIBOCICLIB
     Dosage: 600 MG, QD (DAYS 1-21)
     Route: 048
     Dates: start: 20221003, end: 20230111
  4. ASPIRIN [Concomitant]
     Active Substance: ASPIRIN
     Indication: Product used for unknown indication
     Dosage: UNK
     Route: 065
  5. IBUPROFEN [Concomitant]
     Active Substance: IBUPROFEN
     Indication: Analgesic intervention supportive therapy
     Dosage: UNK
     Route: 065

REACTIONS (7)
  - Hepatotoxicity [Fatal]
  - Anaemia [Fatal]
  - Brain oedema [Fatal]
  - Blood creatine increased [Recovered/Resolved]
  - Neutropenia [Recovered/Resolved]
  - Hydronephrosis [Recovered/Resolved]
  - Blood urea increased [Unknown]

NARRATIVE: CASE EVENT DATE: 20221227
